FAERS Safety Report 6949075-6 (Version None)
Quarter: 2010Q3

REPORT INFORMATION
  Report Type: 
  Country: None (occurrence: None)
  Receive Date: 20100828
  Receipt Date: 20091204
  Transmission Date: 20110219
  Serious: No
  Sender: FDA-Public Use
  Company Number: US-ABBOTT-09P-163-0613153-00

PATIENT
  Sex: Male
  Weight: 83.536 kg

DRUGS (6)
  1. NIASPAN [Suspect]
     Indication: BLOOD TRIGLYCERIDES INCREASED
     Dosage: NIGHTLY
     Dates: start: 20091129, end: 20091202
  2. SYNTHROID [Concomitant]
     Indication: HYPOTHYROIDISM
  3. OMEPRAZOLE [Concomitant]
     Indication: GASTROOESOPHAGEAL REFLUX DISEASE
  4. PLAVIX [Concomitant]
     Indication: CORONARY ARTERIAL STENT INSERTION
  5. DIOVAN [Concomitant]
     Indication: HYPERTENSION
  6. ASPIRIN [Concomitant]
     Indication: CORONARY ARTERIAL STENT INSERTION

REACTIONS (1)
  - FLUSHING [None]
